FAERS Safety Report 15530290 (Version 2)
Quarter: 2018Q4

REPORT INFORMATION
  Report Type: Spontaneous
  Country: US (occurrence: US)
  Receive Date: 20181018
  Receipt Date: 20181106
  Transmission Date: 20190205
  Serious: Yes (Life-Threatening)
  Sender: FDA-Public Use
  Company Number: US-JUBILANT PHARMA LTD-2018US001072

PATIENT
  Age: 41 Year
  Sex: Male

DRUGS (2)
  1. DRAXIMAGE MAA [Suspect]
     Active Substance: TECHNETIUM TC-99M ALBUMIN AGGREGATED
     Indication: VENTILATION/PERFUSION SCAN
     Dosage: 4 MCI, SINGLE DOSE
     Route: 042
     Dates: start: 20180925, end: 20180925
  2. DRAXIMAGE? DTPA [Concomitant]
     Indication: VENTILATION/PERFUSION SCAN
     Dosage: 34.2 MCI, SINGLE DOSE
     Dates: end: 20180925

REACTIONS (5)
  - Hypersensitivity [Recovered/Resolved]
  - Dyspnoea [Recovered/Resolved]
  - Malaise [Recovered/Resolved]
  - Sinus tachycardia [Recovered/Resolved]
  - Feeling hot [Recovered/Resolved]

NARRATIVE: CASE EVENT DATE: 20180925
